FAERS Safety Report 4863505-5 (Version None)
Quarter: 2005Q4

REPORT INFORMATION
  Report Type: 
  Country: None (occurrence: None)
  Receive Date: 20051222
  Receipt Date: 20050321
  Transmission Date: 20060501
  Serious: No
  Sender: FDA-Public Use
  Company Number: US-GLAXOSMITHKLINE-A0550693A

PATIENT
  Age: 65 Year
  Sex: Female

DRUGS (4)
  1. FLONASE [Suspect]
     Indication: SINUS DISORDER
     Route: 045
  2. CLARINEX [Concomitant]
  3. ACTONEL [Concomitant]
  4. ACIPHEX [Concomitant]

REACTIONS (3)
  - DRUG INEFFECTIVE [None]
  - NASAL CONGESTION [None]
  - RHINORRHOEA [None]
